FAERS Safety Report 21048379 (Version 1)
Quarter: 2022Q3

REPORT INFORMATION
  Report Type: Report from Study
  Country: US (occurrence: US)
  Receive Date: 20220706
  Receipt Date: 20220706
  Transmission Date: 20221027
  Serious: Yes (Death)
  Sender: FDA-Public Use
  Company Number: US-JNJFOC-20220658224

PATIENT
  Age: 51 Year
  Sex: Female

DRUGS (5)
  1. SPRAVATO [Suspect]
     Active Substance: ESKETAMINE
     Indication: Depression
     Dosage: 56 MG ONE DOSE
     Dates: start: 20210622, end: 20210622
  2. SPRAVATO [Suspect]
     Active Substance: ESKETAMINE
     Dosage: 84 MG 2 DOSES
     Dates: start: 20210625, end: 20210629
  3. SPRAVATO [Suspect]
     Active Substance: ESKETAMINE
     Dosage: 56 MG 3 DOSES
     Dates: start: 20211015, end: 20211022
  4. SPRAVATO [Suspect]
     Active Substance: ESKETAMINE
     Dosage: 84 MG 19 DOSES
     Dates: start: 20211026, end: 20220401
  5. SPRAVATO [Suspect]
     Active Substance: ESKETAMINE
     Dosage: 84 MG ONE DOSE
     Dates: start: 20220408, end: 20220408

REACTIONS (1)
  - Overdose [Fatal]
